FAERS Safety Report 15839923 (Version 2)
Quarter: 2019Q2

REPORT INFORMATION
  Report Type: Spontaneous
  Country: US (occurrence: US)
  Receive Date: 20190117
  Receipt Date: 20190410
  Transmission Date: 20190711
  Serious: No
  Sender: FDA-Public Use
  Company Number: US-PFIZER INC-2019022242

PATIENT
  Age: 59 Year
  Sex: Female

DRUGS (1)
  1. XELJANZ XR [Suspect]
     Active Substance: TOFACITINIB CITRATE
     Indication: RHEUMATOID ARTHRITIS
     Dosage: 11 MG, DAILY
     Route: 048
     Dates: start: 20180901

REACTIONS (6)
  - Viral infection [Unknown]
  - Fatigue [Unknown]
  - Oropharyngeal pain [Unknown]
  - Malaise [Unknown]
  - Nasopharyngitis [Unknown]
  - Cough [Unknown]

NARRATIVE: CASE EVENT DATE: 201902
